FAERS Safety Report 13656294 (Version 1)
Quarter: 2017Q2

REPORT INFORMATION
  Report Type: Spontaneous
  Country: US (occurrence: US)
  Receive Date: 20170615
  Receipt Date: 20170615
  Transmission Date: 20170830
  Serious: Yes (Other)
  Sender: FDA-Public Use
  Company Number: US-GLAXOSMITHKLINE-US2017089339

PATIENT
  Sex: Male

DRUGS (1)
  1. PARODONTAX [Suspect]
     Active Substance: STANNOUS FLUORIDE
     Indication: GINGIVAL BLEEDING
     Dosage: UNK
     Dates: start: 20170601, end: 20170607

REACTIONS (7)
  - Gingival discolouration [Not Recovered/Not Resolved]
  - Dysphonia [Unknown]
  - Throat irritation [Not Recovered/Not Resolved]
  - Haemoptysis [Not Recovered/Not Resolved]
  - Gingival bleeding [Not Recovered/Not Resolved]
  - Condition aggravated [Not Recovered/Not Resolved]
  - Tooth discolouration [Recovering/Resolving]

NARRATIVE: CASE EVENT DATE: 20170605
